FAERS Safety Report 8265252-9 (Version None)
Quarter: 2012Q2

REPORT INFORMATION
  Report Type: 
  Country: None (occurrence: None)
  Receive Date: 20120406
  Receipt Date: 20120327
  Transmission Date: 20120825
  Serious: Yes (Hospitalization)
  Sender: FDA-Public Use
  Company Number: US-ELI_LILLY_AND_COMPANY-US201111009041

PATIENT
  Age: 72 Year
  Sex: Female
  Weight: 78.912 kg

DRUGS (13)
  1. FORTEO [Suspect]
     Dosage: 20 UG, QD
     Route: 065
  2. REQUIP [Concomitant]
     Dosage: UNK, UNKNOWN
     Route: 065
  3. CETIRIZINE HCL [Concomitant]
     Dosage: UNK, UNKNOWN
     Route: 065
  4. HYDROCHLOROTH [Concomitant]
     Dosage: UNK, UNKNOWN
     Route: 065
  5. LOSARTAN POTASSIUM [Concomitant]
     Dosage: UNK, UNKNOWN
     Route: 065
  6. ASPIRIN [Concomitant]
     Dosage: UNK, UNKNOWN
     Route: 065
  7. VITAMIN D [Concomitant]
     Indication: VITAMIN D DECREASED
     Dosage: UNK, UNKNOWN
     Route: 065
  8. FORTEO [Suspect]
     Indication: OSTEOPOROSIS
     Dosage: 20 UG, QD
     Route: 065
  9. EVISTA [Suspect]
     Dosage: 60 MG, QD
     Route: 065
     Dates: start: 20110818, end: 20111101
  10. SIMVASTATIN [Concomitant]
     Dosage: UNK, UNKNOWN
     Route: 065
  11. FORTEO [Suspect]
     Dosage: 20 UG, QD
     Route: 065
  12. OMEPRAZOLE [Concomitant]
     Dosage: UNK, UNKNOWN
     Route: 065
  13. LEVOXYL [Concomitant]
     Dosage: UNK, UNKNOWN
     Route: 065

REACTIONS (17)
  - BLOOD POTASSIUM DECREASED [None]
  - SOMNOLENCE [None]
  - MUSCULAR WEAKNESS [None]
  - PAIN [None]
  - FATIGUE [None]
  - DIZZINESS [None]
  - HYPERHIDROSIS [None]
  - DYSLEXIA [None]
  - CHEST DISCOMFORT [None]
  - MUSCULOSKELETAL DISCOMFORT [None]
  - ANXIETY [None]
  - CARPAL TUNNEL SYNDROME [None]
  - POST PROCEDURAL INFECTION [None]
  - CONTINUOUS POSITIVE AIRWAY PRESSURE [None]
  - JOINT STIFFNESS [None]
  - POST PROCEDURAL COMPLICATION [None]
  - NAUSEA [None]
